FAERS Safety Report 10302020 (Version 1)
Quarter: 2014Q3

REPORT INFORMATION
  Report Type: Spontaneous
  Country: US (occurrence: None)
  Receive Date: 20140709
  Receipt Date: 20140709
  Transmission Date: 20150326
  Serious: Yes (Other)
  Sender: FDA-Public Use
  Company Number: None

PATIENT
  Age: 6 Year
  Sex: Male
  Weight: 18.14 kg

DRUGS (1)
  1. MIRALAX [Suspect]
     Active Substance: POLYETHYLENE GLYCOL 3350
     Indication: CONSTIPATION
     Dosage: HALF CAP  TWICE DAILY  TAKEN BY MOUTH
     Route: 048
     Dates: start: 20071106, end: 20140701

REACTIONS (3)
  - Memory impairment [None]
  - Rash macular [None]
  - Nervous system disorder [None]

NARRATIVE: CASE EVENT DATE: 20071106
